FAERS Safety Report 8932952 (Version 1)
Quarter: 2012Q4

REPORT INFORMATION
  Report Type: Report from Study
  Country: SK (occurrence: SK)
  Receive Date: 20121129
  Receipt Date: 20121129
  Transmission Date: 20130627
  Serious: Yes (Death)
  Sender: FDA-Public Use
  Company Number: PHHY2012SK108832

PATIENT
  Age: 77 Year
  Sex: Male
  Weight: 70 kg

DRUGS (2)
  1. INDACATEROL [Suspect]
  2. CHEMOTHERAPEUTICS [Concomitant]
     Indication: BRONCHIAL CARCINOMA
     Dates: start: 20120516

REACTIONS (2)
  - Bronchial carcinoma [Fatal]
  - Squamous cell carcinoma [Fatal]
